FAERS Safety Report 5513627-0 (Version None)
Quarter: 2007Q4

REPORT INFORMATION
  Report Type: 
  Country: None (occurrence: None)
  Receive Date: 20071112
  Receipt Date: 20071109
  Transmission Date: 20080405
  Serious: Yes (Death)
  Sender: FDA-Public Use
  Company Number: JP-BOEHRINGER INGELHEIM PHARMACEUTICALS, INC.-2007-BP-21901NB

PATIENT
  Sex: Female
  Weight: 49 kg

DRUGS (5)
  1. MICARDIS [Suspect]
     Indication: HYPERTENSION
     Route: 048
     Dates: start: 20060804, end: 20070319
  2. HERBESSER R [Concomitant]
     Route: 048
  3. NIKORANMART [Concomitant]
     Route: 048
  4. ARGAMATE [Concomitant]
     Route: 048
  5. THEO SLOW [Concomitant]
     Route: 048

REACTIONS (1)
  - CARDIAC FAILURE ACUTE [None]
